FAERS Safety Report 7303779-4 (Version None)
Quarter: 2011Q1

REPORT INFORMATION
  Report Type: 
  Country: None (occurrence: None)
  Receive Date: 20110221
  Receipt Date: 20110215
  Transmission Date: 20110831
  Serious: Yes (Other)
  Sender: FDA-Public Use
  Company Number: FR-BRISTOL-MYERS SQUIBB COMPANY-15438419

PATIENT
  Age: 35 Year
  Sex: Female
  Weight: 49 kg

DRUGS (5)
  1. ABILIFY [Suspect]
     Indication: SCHIZOPHRENIA
     Dosage: INCREASED TO 45MG/DAY-OCT10 3 TABS DAILY 30MG(15MG IN MRNG + 15MG IN EVENG)
     Route: 048
     Dates: start: 20090101
  2. LOXAPAC [Suspect]
  3. ALPRAZOLAM [Concomitant]
     Dosage: 1DF = 3TABS
  4. SEROPLEX [Concomitant]
     Dosage: AT BEDTIME
     Route: 048
  5. LAROXYL [Concomitant]
     Dosage: AT BED TIME
     Route: 048

REACTIONS (5)
  - HALLUCINATION, AUDITORY [None]
  - WEIGHT INCREASED [None]
  - TREMOR [None]
  - OVERDOSE [None]
  - HORMONE LEVEL ABNORMAL [None]
